FAERS Safety Report 19880694 (Version 1)
Quarter: 2021Q3

REPORT INFORMATION
  Report Type: Spontaneous
  Country: FR (occurrence: FR)
  Receive Date: 20210924
  Receipt Date: 20210924
  Transmission Date: 20211014
  Serious: Yes (Hospitalization, Other)
  Sender: FDA-Public Use
  Company Number: FR-LUPIN PHARMACEUTICALS INC.-2021-18086

PATIENT
  Age: 58 Year
  Sex: Male

DRUGS (4)
  1. FOLIC ACID. [Concomitant]
     Active Substance: FOLIC ACID
     Indication: VITAMIN SUPPLEMENTATION
     Dosage: UNK
     Route: 065
  2. TETRABENAZINE. [Suspect]
     Active Substance: TETRABENAZINE
     Indication: FRAGILE X SYNDROME
     Dosage: 12.5 MILLIGRAM, QD
     Route: 065
     Dates: start: 20191024
  3. TETRABENAZINE. [Suspect]
     Active Substance: TETRABENAZINE
     Indication: TREMOR
     Dosage: 100 MILLIGRAM, QD
     Route: 065
     Dates: start: 20191123
  4. TETRABENAZINE. [Suspect]
     Active Substance: TETRABENAZINE
     Indication: CEREBELLAR ATAXIA

REACTIONS (4)
  - Agranulocytosis [Recovered/Resolved]
  - Fatigue [Unknown]
  - Nausea [Unknown]
  - Thrombocytopenia [Recovered/Resolved]

NARRATIVE: CASE EVENT DATE: 20191130
